FAERS Safety Report 4338923-4 (Version None)
Quarter: 2004Q2

REPORT INFORMATION
  Report Type: 
  Country: None (occurrence: None)
  Receive Date: 20040409
  Receipt Date: 20040331
  Transmission Date: 20050107
  Serious: Yes (Other)
  Sender: FDA-Public Use
  Company Number: DE-SHR-03-014281

PATIENT
  Age: 38 Year
  Sex: Female

DRUGS (2)
  1. BETAFERON (INTERFERON BETA - 1B) INJECTION [Suspect]
     Indication: MULTIPLE SCLEROSIS
     Dosage: SUBCUTANEOUS
     Route: 058
     Dates: start: 20000701, end: 20031101
  2. BETAFERON (INTERFERON BETA - 1B) INJECTION [Suspect]
     Indication: MULTIPLE SCLEROSIS
     Dosage: SUBCUTANEOUS
     Route: 058
     Dates: start: 20040201

REACTIONS (11)
  - BURNING SENSATION [None]
  - DERMATITIS BULLOUS [None]
  - HAIR DISORDER [None]
  - INJECTION SITE HAEMORRHAGE [None]
  - INJECTION SITE INDURATION [None]
  - INJECTION SITE INFLAMMATION [None]
  - INJECTION SITE NECROSIS [None]
  - LYMPHADENOPATHY [None]
  - MULTIPLE SCLEROSIS RELAPSE [None]
  - PAIN IN EXTREMITY [None]
  - SENSORY DISTURBANCE [None]
